FAERS Safety Report 4891325-4 (Version None)
Quarter: 2006Q1

REPORT INFORMATION
  Report Type: 
  Country: None (occurrence: None)
  Receive Date: 20060125
  Receipt Date: 20060116
  Transmission Date: 20060701
  Serious: Yes (Other)
  Sender: FDA-Public Use
  Company Number: PT-ABBOTT-06P-130-0322523-00

PATIENT
  Age: 79 Year
  Sex: Male

DRUGS (4)
  1. HYTRIN [Suspect]
     Indication: BENIGN PROSTATIC HYPERPLASIA
     Route: 048
     Dates: start: 20060113, end: 20060113
  2. LOSARTAN POTASSIUM [Concomitant]
     Indication: HYPERTENSION
     Route: 048
  3. DORZOLAMIDE HYDROCHLORIDE [Concomitant]
     Indication: GLAUCOMA
     Route: 047
  4. TIMOGLAU PLUS [Concomitant]
     Indication: GLAUCOMA
     Route: 047

REACTIONS (7)
  - BLINDNESS [None]
  - CONFUSIONAL STATE [None]
  - ENURESIS [None]
  - MEDICATION ERROR [None]
  - OVERDOSE [None]
  - PALLOR [None]
  - SOMNOLENCE [None]
